FAERS Safety Report 19897658 (Version 1)
Quarter: 2021Q3

REPORT INFORMATION
  Report Type: Spontaneous
  Country: US (occurrence: US)
  Receive Date: 20210929
  Receipt Date: 20210929
  Transmission Date: 20211014
  Serious: No
  Sender: FDA-Public Use
  Company Number: US-009507513-2109USA004139

PATIENT
  Sex: Female

DRUGS (1)
  1. PRINIVIL [Suspect]
     Active Substance: LISINOPRIL
     Indication: HYPERTENSION
     Dosage: UNK
     Route: 048
     Dates: start: 201903

REACTIONS (4)
  - Dysphonia [Recovered/Resolved]
  - Swelling [Recovered/Resolved]
  - Pharyngeal erythema [Recovered/Resolved]
  - Cough [Recovered/Resolved]
